FAERS Safety Report 11614687 (Version 1)
Quarter: 2015Q4

REPORT INFORMATION
  Report Type: Spontaneous
  Country: US (occurrence: None)
  Receive Date: 20151008
  Receipt Date: 20151008
  Transmission Date: 20160304
  Serious: No
  Sender: FDA-Public Use
  Company Number: None

PATIENT
  Sex: Female

DRUGS (1)
  1. IBRANCE [Suspect]
     Active Substance: PALBOCICLIB
     Indication: OESTROGEN RECEPTOR ASSAY POSITIVE
     Dosage: 125MG DAILY FOR 21 DAYS ORAL
     Route: 048
     Dates: start: 20150521

REACTIONS (1)
  - Fatigue [None]

NARRATIVE: CASE EVENT DATE: 2015
